FAERS Safety Report 24277642 (Version 2)
Quarter: 2024Q3

REPORT INFORMATION
  Report Type: Spontaneous
  Country: BR (occurrence: BR)
  Receive Date: 20240903
  Receipt Date: 20240911
  Transmission Date: 20241017
  Serious: Yes (Other)
  Sender: MERCK
  Company Number: BR-009507513-2409BRA000655

PATIENT
  Age: 63 Year
  Sex: Male

DRUGS (6)
  1. PEMBROLIZUMAB [Suspect]
     Active Substance: PEMBROLIZUMAB
     Indication: Lung adenocarcinoma
     Dosage: UNK
     Dates: start: 20210409, end: 20210614
  2. PEMBROLIZUMAB [Suspect]
     Active Substance: PEMBROLIZUMAB
     Indication: Cancer with a high tumour mutational burden
     Dosage: UNK
     Dates: start: 202107
  3. CARBOPLATIN [Suspect]
     Active Substance: CARBOPLATIN
     Indication: Lung adenocarcinoma
     Dosage: UNK
     Dates: start: 20210409, end: 20210614
  4. CARBOPLATIN [Suspect]
     Active Substance: CARBOPLATIN
     Indication: Cancer with a high tumour mutational burden
  5. PEMETREXED [Suspect]
     Active Substance: PEMETREXED
     Indication: Lung adenocarcinoma
     Dosage: UNK
     Dates: start: 20210409, end: 20210614
  6. PEMETREXED [Suspect]
     Active Substance: PEMETREXED
     Indication: Cancer with a high tumour mutational burden
     Dosage: UNK
     Dates: start: 202107

REACTIONS (2)
  - Renal impairment [Unknown]
  - Product use in unapproved indication [Unknown]

NARRATIVE: CASE EVENT DATE: 20210701
